FAERS Safety Report 6757560-5 (Version None)
Quarter: 2010Q2

REPORT INFORMATION
  Report Type: 
  Country: None (occurrence: None)
  Receive Date: 20100607
  Receipt Date: 20100524
  Transmission Date: 20101027
  Serious: Yes (Hospitalization)
  Sender: FDA-Public Use
  Company Number: IT-RANBAXY-2010RR-34243

PATIENT
  Sex: Male

DRUGS (1)
  1. PARACETAMOL [Suspect]

REACTIONS (1)
  - HEPATITIS [None]
